FAERS Safety Report 19894022 (Version 2)
Quarter: 2021Q4

REPORT INFORMATION
  Report Type: Report from Study
  Country: TW (occurrence: TW)
  Receive Date: 20210928
  Receipt Date: 20211018
  Transmission Date: 20220303
  Serious: Yes (Death, Hospitalization, Other)
  Sender: FDA-Public Use
  Company Number: NVSC2021TW219524

PATIENT
  Age: 3 Year
  Sex: Female
  Weight: 17 kg

DRUGS (3)
  1. TRAMETINIB [Suspect]
     Active Substance: TRAMETINIB
     Indication: Glioma
     Dosage: 0.5 MG
     Route: 048
     Dates: start: 20210825, end: 20210924
  2. TRAMETINIB [Suspect]
     Active Substance: TRAMETINIB
     Dosage: 0.17 UNK, QD(FOR 6 DAYS)
     Route: 048
     Dates: start: 20210825, end: 20210830
  3. TRAMETINIB [Suspect]
     Active Substance: TRAMETINIB
     Dosage: 0.25 UNK, QD(FOR 25 DAYS)
     Route: 048
     Dates: start: 20210831, end: 20210924

REACTIONS (9)
  - Septic shock [Fatal]
  - Seizure [Fatal]
  - Pyrexia [Fatal]
  - Loss of consciousness [Fatal]
  - Multiple organ dysfunction syndrome [Fatal]
  - Lip ulceration [Unknown]
  - Folliculitis [Unknown]
  - Diarrhoea [Unknown]
  - Decreased appetite [Unknown]

NARRATIVE: CASE EVENT DATE: 20210912
